FAERS Safety Report 14447148 (Version 1)
Quarter: 2018Q1

REPORT INFORMATION
  Report Type: Spontaneous
  Country: JP (occurrence: JP)
  Receive Date: 20180126
  Receipt Date: 20180126
  Transmission Date: 20180509
  Serious: Yes (Life-Threatening)
  Sender: FDA-Public Use
  Company Number: PHHY2018JP011735

PATIENT
  Age: 49 Year
  Sex: Female

DRUGS (4)
  1. AMIODARONE [Suspect]
     Active Substance: AMIODARONE
     Indication: VENTRICULAR TACHYCARDIA
     Dosage: 100 MG, QD
     Route: 065
  2. PREDNISOLON [Suspect]
     Active Substance: PREDNISOLONE
     Dosage: 60 MG, QD (1.0 MG/KG)
     Route: 048
  3. AMIODARONE [Suspect]
     Active Substance: AMIODARONE
     Dosage: 50 MG, QD
     Route: 065
  4. PREDNISOLON [Suspect]
     Active Substance: PREDNISOLONE
     Indication: HYPERTHYROIDISM
     Dosage: 30 MG, QD (0.5 MG/KG)
     Route: 048

REACTIONS (1)
  - Hyperthyroidism [Unknown]
